FAERS Safety Report 6526367-6 (Version None)
Quarter: 2010Q1

REPORT INFORMATION
  Report Type: 
  Country: None (occurrence: None)
  Receive Date: 20100105
  Receipt Date: 20091223
  Transmission Date: 20100710
  Serious: Yes (Other)
  Sender: FDA-Public Use
  Company Number: GB-TEVA-219169ISR

PATIENT
  Age: 19 Year
  Sex: Male

DRUGS (2)
  1. VALPROIC ACID [Suspect]
     Indication: EPILEPSY
     Route: 048
     Dates: start: 20090707
  2. CLOZAPINE [Interacting]
     Route: 048
     Dates: start: 20090710

REACTIONS (2)
  - DRUG INTERACTION [None]
  - TACHYCARDIA [None]
